FAERS Safety Report 9759221 (Version 3)
Quarter: 2014Q1

REPORT INFORMATION
  Report Type: Report from Study
  Country: BR (occurrence: BR)
  Receive Date: 20131216
  Receipt Date: 20140120
  Transmission Date: 20141002
  Serious: No
  Sender: FDA-Public Use
  Company Number: BR-ROCHE-1216705

PATIENT
  Sex: Female
  Weight: 63 kg

DRUGS (6)
  1. ACTEMRA [Suspect]
     Indication: RHEUMATOID ARTHRITIS
     Dosage: ON 27/NOV/2013, SHE HAD RECEIVED HER MOST RECENT DOSE OF TOCILIZUMAB
     Route: 042
     Dates: start: 20120403
  2. METHOTREXATE [Concomitant]
     Indication: RHEUMATOID ARTHRITIS
  3. LIVIAL [Concomitant]
     Indication: MENOPAUSE
  4. SYNTHROID [Concomitant]
  5. OMEGA 3 [Concomitant]
  6. SIRDALUD [Concomitant]

REACTIONS (4)
  - Influenza [Recovering/Resolving]
  - Cough [Not Recovered/Not Resolved]
  - Pain [Recovered/Resolved]
  - Drug dose omission [Unknown]
